FAERS Safety Report 10023549 (Version 1)
Quarter: 2014Q1

REPORT INFORMATION
  Report Type: Spontaneous
  Country: US (occurrence: None)
  Receive Date: 20140106
  Receipt Date: 20140106
  Transmission Date: 20141002
  Serious: No
  Sender: FDA-Public Use
  Company Number: 2013-00138

PATIENT
  Age: 65 Year
  Sex: Female

DRUGS (1)
  1. ZICAM ULTRA COLD REMEDY RAPIDMELTS [Suspect]
     Indication: NASOPHARYNGITIS
     Route: 048

REACTIONS (1)
  - Ageusia [None]
